FAERS Safety Report 15792941 (Version 6)
Quarter: 2020Q2

REPORT INFORMATION
  Report Type: Report from Study
  Country: US (occurrence: US)
  Receive Date: 20190107
  Receipt Date: 20200518
  Transmission Date: 20200713
  Serious: Yes (Other)
  Sender: FDA-Public Use
  Company Number: US-AMGEN INC.-USASL2018164164

PATIENT
  Age: 52 Year
  Sex: Female
  Weight: 72.1 kg

DRUGS (9)
  1. AIMOVIG [Suspect]
     Active Substance: ERENUMAB-AOOE
     Indication: MIGRAINE WITHOUT AURA
     Dosage: 140 MG, QMO
     Route: 058
     Dates: start: 201809
  2. CELEBREX [Concomitant]
     Active Substance: CELECOXIB
     Dosage: UNK
     Dates: end: 20190214
  3. AIMOVIG [Suspect]
     Active Substance: ERENUMAB-AOOE
     Dosage: 140 MG, QMO
     Route: 058
  4. IMITREX [Concomitant]
     Active Substance: SUMATRIPTAN SUCCINATE
     Indication: MIGRAINE
     Dosage: UNK
  5. TETRACYCLINE [Concomitant]
     Active Substance: TETRACYCLINE
     Indication: PRODUCT USED FOR UNKNOWN INDICATION
     Dosage: UNK
     Route: 065
  6. TOPAMAX [Concomitant]
     Active Substance: TOPIRAMATE
     Indication: MIGRAINE
     Dosage: UNK
     Dates: start: 2016
  7. TECFIDERA [Suspect]
     Active Substance: DIMETHYL FUMARATE
     Indication: MULTIPLE SCLEROSIS
     Dosage: UNK
     Route: 065
     Dates: start: 2017
  8. AIMOVIG [Suspect]
     Active Substance: ERENUMAB-AOOE
     Dosage: 140 MG, QMO
     Route: 058
     Dates: end: 20181205
  9. BOTOX [Concomitant]
     Active Substance: ONABOTULINUMTOXINA
     Indication: MIGRAINE
     Dosage: UNK
     Dates: start: 201702

REACTIONS (15)
  - Rectal haemorrhage [Unknown]
  - Arthropod bite [Unknown]
  - Gingival disorder [Unknown]
  - Injection site scab [Unknown]
  - Herpes zoster [Unknown]
  - Oral candidiasis [Recovering/Resolving]
  - Gingival pain [Unknown]
  - Periodontal disease [Unknown]
  - Rash [Unknown]
  - Tooth loss [Not Recovered/Not Resolved]
  - Injection site indentation [Unknown]
  - Injection site rash [Unknown]
  - Immune system disorder [Unknown]
  - Skin ulcer [Unknown]
  - Adverse drug reaction [Unknown]

NARRATIVE: CASE EVENT DATE: 2018
